FAERS Safety Report 6800967-8 (Version None)
Quarter: 2010Q2

REPORT INFORMATION
  Report Type: 
  Country: None (occurrence: None)
  Receive Date: 20100629
  Receipt Date: 20100617
  Transmission Date: 20101027
  Serious: Yes (Hospitalization)
  Sender: FDA-Public Use
  Company Number: PHHY2010US39571

PATIENT
  Sex: Female
  Weight: 53 kg

DRUGS (2)
  1. EXJADE [Suspect]
     Indication: IRON OVERLOAD
     Dosage: 625 MG
     Dates: start: 20090218
  2. EXJADE [Suspect]
     Indication: MYELODYSPLASTIC SYNDROME
     Dosage: 625 MG, QD
     Route: 048
     Dates: start: 20090304

REACTIONS (1)
  - NEPHROLITHIASIS [None]
